FAERS Safety Report 5098394-X (Version None)
Quarter: 2006Q3

REPORT INFORMATION
  Report Type: 
  Country: None (occurrence: None)
  Receive Date: 20060906
  Receipt Date: 20060831
  Transmission Date: 20061208
  Serious: Yes (Death)
  Sender: FDA-Public Use
  Company Number: FR-SANOFI-SYNTHELABO-A02200602199

PATIENT
  Age: 77 Year
  Sex: Male
  Weight: 75 kg

DRUGS (3)
  1. RISPERDAL [Concomitant]
     Indication: PSYCHOTIC DISORDER
     Dosage: UNK
     Route: 048
     Dates: end: 20060126
  2. TIAPRIDAL [Concomitant]
     Indication: INTERMITTENT EXPLOSIVE DISORDER
     Dosage: UNK
     Route: 048
     Dates: end: 20060126
  3. PLAVIX [Suspect]
     Indication: DRUG USE FOR UNKNOWN INDICATION
     Dosage: UNK
     Route: 048
     Dates: end: 20060126

REACTIONS (1)
  - HAEMORRHAGIC STROKE [None]
